FAERS Safety Report 8954728 (Version 1)
Quarter: 2012Q4

REPORT INFORMATION
  Report Type: 
  Country: US (occurrence: US)
  Receive Date: 20121207
  Receipt Date: 20121207
  Transmission Date: 20130627
  Serious: No
  Sender: FDA-Public Use
  Company Number: US-ASTRAZENECA-2012SE88625

PATIENT
  Age: 59 Year
  Sex: Male
  Weight: 95.3 kg

DRUGS (2)
  1. SYMBICORT PMDI [Suspect]
     Indication: ASTHMA
     Dosage: 160/4.5MCG, TWICE A DAY
     Route: 055
     Dates: start: 20121019
  2. ANTIHISTAMINE OTC [Concomitant]

REACTIONS (4)
  - Productive cough [Unknown]
  - Pulmonary congestion [Unknown]
  - Adverse event [Unknown]
  - Cough [Unknown]
